FAERS Safety Report 21531242 (Version 1)
Quarter: 2022Q4

REPORT INFORMATION
  Report Type: Spontaneous
  Country: US (occurrence: None)
  Receive Date: 20221028
  Receipt Date: 20221028
  Transmission Date: 20230113
  Serious: Yes (Hospitalization)
  Sender: FDA-Public Use
  Company Number: None

PATIENT
  Age: 75 Year
  Sex: Female
  Weight: 89.36 kg

DRUGS (1)
  1. HYDROCHLOROTHIAZIDE [Suspect]
     Active Substance: HYDROCHLOROTHIAZIDE
     Indication: Hypertension
     Dosage: 25 MG EVERY DAY PO
     Route: 048
     Dates: start: 20210713, end: 20220706

REACTIONS (4)
  - Hyponatraemia [None]
  - Urinary tract infection [None]
  - Confusional state [None]
  - Hypophagia [None]

NARRATIVE: CASE EVENT DATE: 20220706
